FAERS Safety Report 5862449-X (Version None)
Quarter: 2008Q3

REPORT INFORMATION
  Report Type: 
  Country: None (occurrence: None)
  Receive Date: 20080828
  Receipt Date: 20080822
  Transmission Date: 20090109
  Serious: Yes (Death)
  Sender: FDA-Public Use
  Company Number: US-PURDUE-USA_2008_0034614

PATIENT
  Age: 15 Month
  Sex: Female

DRUGS (3)
  1. OXYCONTIN [Suspect]
     Route: 065
  2. OXYCODONE HCL [Suspect]
  3. XANAX [Suspect]

REACTIONS (1)
  - ACCIDENTAL DRUG INTAKE BY CHILD [None]
